FAERS Safety Report 8936386 (Version 1)
Quarter: 2012Q4

REPORT INFORMATION
  Report Type: 
  Country: US (occurrence: US)
  Receive Date: 20121130
  Receipt Date: 20121130
  Transmission Date: 20130627
  Serious: No
  Sender: FDA-Public Use
  Company Number: US-B.I. PHARMACEUTICALS,INC./RIDGEFIELD-2012-BI-00354BP

PATIENT
  Sex: Female

DRUGS (4)
  1. JENTADUETO [Suspect]
     Dates: start: 20121005, end: 20121012
  2. ADIPEX [Concomitant]
     Dosage: 37.5 mg
  3. AMBIEN [Concomitant]
     Dosage: 10 mg
     Route: 048
  4. COLNAZEPAM [Concomitant]
     Dosage: 3 mg

REACTIONS (1)
  - Arthralgia [Recovered/Resolved]
